FAERS Safety Report 4893685-7 (Version None)
Quarter: 2006Q1

REPORT INFORMATION
  Report Type: 
  Country: None (occurrence: None)
  Receive Date: 20060124
  Receipt Date: 20060112
  Transmission Date: 20060701
  Serious: Yes (Hospitalization)
  Sender: FDA-Public Use
  Company Number: 2006008248

PATIENT
  Sex: Male
  Weight: 70 kg

DRUGS (4)
  1. MEFENAMIC ACID [Suspect]
     Indication: PAIN
     Dosage: ORAL
     Route: 048
     Dates: end: 20051130
  2. VIREAD [Suspect]
     Indication: INFECTION
     Dosage: 245 MG (245 MG, 1 IN 1 D), ORAL
     Route: 048
     Dates: start: 20051125, end: 20051130
  3. 3TC (LAMIVUDINE) [Suspect]
     Indication: INFECTION
     Dosage: 300 MG (300 MG, 1 IN 1 D),  ORAL
     Route: 048
     Dates: start: 20051125, end: 20051130
  4. KALETRA [Suspect]
     Indication: INFECTION
     Dosage: (6 IN 1 D), ORAL
     Route: 048
     Dates: start: 20051225, end: 20051130

REACTIONS (4)
  - DIALYSIS [None]
  - RENAL FAILURE ACUTE [None]
  - RENAL TUBULAR NECROSIS [None]
  - STAPHYLOCOCCAL SEPSIS [None]
